FAERS Safety Report 8189804-X (Version None)
Quarter: 2012Q1

REPORT INFORMATION
  Report Type: 
  Country: None (occurrence: None)
  Receive Date: 20120307
  Receipt Date: 20110523
  Transmission Date: 20120608
  Serious: No
  Sender: FDA-Public Use
  Company Number: US-GLAXOSMITHKLINE-A0929594A

PATIENT
  Sex: Male

DRUGS (1)
  1. REQUIP [Suspect]
     Dosage: 3MG THREE TIMES PER DAY
     Route: 065
     Dates: start: 20080101

REACTIONS (3)
  - NIGHT SWEATS [None]
  - DIZZINESS [None]
  - NAUSEA [None]
